FAERS Safety Report 6309442-0 (Version None)
Quarter: 2009Q3

REPORT INFORMATION
  Report Type: 
  Country: None (occurrence: None)
  Receive Date: 20090814
  Receipt Date: 20090803
  Transmission Date: 20100115
  Serious: Yes (Other)
  Sender: FDA-Public Use
  Company Number: US-TYCO HEALTHCARE/MALLINCKRODT-T200901510

PATIENT
  Sex: Male

DRUGS (6)
  1. OPTIMARK [Suspect]
     Indication: NUCLEAR MAGNETIC RESONANCE IMAGING BRAIN
     Dosage: UNK
     Dates: start: 20070119, end: 20070119
  2. OPTIMARK [Suspect]
     Indication: NUCLEAR MAGNETIC RESONANCE IMAGING
     Dosage: UNK
     Dates: start: 20070123, end: 20070123
  3. OPTIMARK [Suspect]
     Dosage: UNK
     Dates: start: 20070126, end: 20070126
  4. OMNISCAN [Suspect]
     Indication: NUCLEAR MAGNETIC RESONANCE IMAGING
     Dosage: UNK
     Dates: start: 20061102, end: 20061102
  5. GADOLINIUM [Suspect]
     Dosage: UNK
     Dates: start: 20070126, end: 20070126
  6. GADOLINIUM [Suspect]
     Dosage: UNK

REACTIONS (1)
  - NEPHROGENIC SYSTEMIC FIBROSIS [None]
